FAERS Safety Report 6879187-7 (Version None)
Quarter: 2010Q3

REPORT INFORMATION
  Report Type: 
  Country: None (occurrence: None)
  Receive Date: 20100728
  Receipt Date: 20100716
  Transmission Date: 20110219
  Serious: Yes (Other)
  Sender: FDA-Public Use
  Company Number: US-PFIZER INC-2010010322

PATIENT
  Age: 39 Year
  Sex: Female

DRUGS (5)
  1. SERTRALINE HYDROCHLORIDE [Suspect]
     Dosage: 100 MG DAILY
  2. FENTANYL CITRATE [Interacting]
     Indication: SEDATION
     Dosage: 25 UG, TWICE
  3. MIDAZOLAM HYDROCHLORIDE [Concomitant]
     Dosage: 1 MG, TWO DOSES
  4. OCTREOTIDE [Concomitant]
  5. PANTOPRAZOLE [Concomitant]

REACTIONS (2)
  - DRUG INTERACTION [None]
  - SEROTONIN SYNDROME [None]
